FAERS Safety Report 17213995 (Version 3)
Quarter: 2020Q1

REPORT INFORMATION
  Report Type: Spontaneous
  Country: US (occurrence: US)
  Receive Date: 20191230
  Receipt Date: 20200324
  Transmission Date: 20200409
  Serious: Yes (Other)
  Sender: FDA-Public Use
  Company Number: US-PFIZER INC-2019555668

PATIENT
  Age: 32 Year
  Sex: Female

DRUGS (1)
  1. SOMAVERT [Suspect]
     Active Substance: PEGVISOMANT
     Indication: ACROMEGALY
     Dosage: 10 MG, DAILY
     Route: 058
     Dates: start: 20191219

REACTIONS (12)
  - Gastroenteritis viral [Unknown]
  - Fatigue [Not Recovered/Not Resolved]
  - Headache [Not Recovered/Not Resolved]
  - Neoplasm skin [Unknown]
  - Arthralgia [Not Recovered/Not Resolved]
  - Constipation [Not Recovered/Not Resolved]
  - Lipoma [Unknown]
  - Nasopharyngitis [Not Recovered/Not Resolved]
  - Neuralgia [Not Recovered/Not Resolved]
  - Upper respiratory tract infection [Unknown]
  - Hypersensitivity [Not Recovered/Not Resolved]
  - Off label use [Unknown]

NARRATIVE: CASE EVENT DATE: 201912
